FAERS Safety Report 16907885 (Version 1)
Quarter: 2019Q4

REPORT INFORMATION
  Report Type: Spontaneous
  Country: DZ (occurrence: DZ)
  Receive Date: 20191011
  Receipt Date: 20191011
  Transmission Date: 20200122
  Serious: Yes (Hospitalization)
  Sender: FDA-Public Use
  Company Number: DZ-LEO PHARMA-325640

PATIENT
  Age: 35 Year
  Sex: Male

DRUGS (1)
  1. DAIVOBET [Suspect]
     Active Substance: BETAMETHASONE DIPROPIONATE\CALCIPOTRIENE
     Indication: PSORIASIS
     Dosage: 50 MCG/0.5 MG/G
     Route: 061
     Dates: start: 2017

REACTIONS (5)
  - Photosensitivity reaction [Unknown]
  - Dermatitis exfoliative generalised [Unknown]
  - Product administered at inappropriate site [Unknown]
  - Product administration error [Unknown]
  - Overdose [Unknown]

NARRATIVE: CASE EVENT DATE: 2017
